FAERS Safety Report 10240417 (Version 1)
Quarter: 2014Q2

REPORT INFORMATION
  Report Type: Spontaneous
  Country: US (occurrence: US)
  Receive Date: 20140617
  Receipt Date: 20140617
  Transmission Date: 20141212
  Serious: No
  Sender: FDA-Public Use
  Company Number: US-BIOGENIDEC-2014BI055250

PATIENT
  Sex: Female

DRUGS (7)
  1. TECFIDERA [Suspect]
     Indication: PRODUCT USED FOR UNKNOWN INDICATION
  2. AMPYRA [Concomitant]
     Indication: MULTIPLE SCLEROSIS
     Route: 048
  3. TIZANIDINE [Concomitant]
  4. GILENYA [Concomitant]
  5. CELEXA [Concomitant]
  6. PORTIA-28 [Concomitant]
  7. BACLOFEN [Concomitant]

REACTIONS (2)
  - Blood pressure decreased [Unknown]
  - Adverse reaction [Unknown]
